FAERS Safety Report 23666716 (Version 1)
Quarter: 2024Q1

REPORT INFORMATION
  Report Type: Report from Study
  Country: GB (occurrence: GB)
  Receive Date: 20240325
  Receipt Date: 20240325
  Transmission Date: 20240410
  Serious: Yes (Death, Other)
  Sender: FDA-Public Use
  Company Number: GB-CELLTRION INC.-2024GB004060

PATIENT

DRUGS (12)
  1. BEVACIZUMAB [Suspect]
     Active Substance: BEVACIZUMAB
     Indication: Hepatocellular carcinoma
     Dosage: 1200 MG
     Route: 065
     Dates: start: 20230111
  2. ATEZOLIZUMAB [Suspect]
     Active Substance: ATEZOLIZUMAB
     Indication: Hepatocellular carcinoma
     Dosage: 1200 MG
     Route: 041
     Dates: start: 20230111
  3. BUDESONIDE [Concomitant]
     Active Substance: BUDESONIDE
     Dosage: EVERY 0.5 DAY (200 MCG;)
     Dates: start: 1993
  4. FORMOTEROL [Concomitant]
     Active Substance: FORMOTEROL
     Dosage: EVERY 0.5 DAY (6 MCG;)
     Dates: start: 1993
  5. MOMETASONE [Concomitant]
     Active Substance: MOMETASONE
     Dosage: 0.1 %, EVERY 1 DAY
     Dates: start: 20231220
  6. OMEPRAZOLE [Concomitant]
     Active Substance: OMEPRAZOLE
     Dosage: EVERY 1 DAY
     Dates: start: 202204
  7. ALBUTEROL [Concomitant]
     Active Substance: ALBUTEROL
     Dosage: UNK
     Dates: start: 1979, end: 20240307
  8. RENAPRO [Concomitant]
  9. PREDNISOLONE [Concomitant]
     Active Substance: PREDNISOLONE
  10. SODIUM PHOSPHATE [Concomitant]
     Active Substance: SODIUM PHOSPHATE
  11. DOXYCYCLINE [Concomitant]
     Active Substance: DOXYCYCLINE
  12. DALTEPARIN [Concomitant]
     Active Substance: DALTEPARIN

REACTIONS (7)
  - Death [Fatal]
  - Embolism [Not Recovered/Not Resolved]
  - Pneumonia [Recovered/Resolved]
  - Pneumonia [Unknown]
  - Hypophosphataemia [Recovered/Resolved]
  - Rash [Recovered/Resolved]
  - Intentional product use issue [Unknown]

NARRATIVE: CASE EVENT DATE: 20231128
